FAERS Safety Report 5873086-5 (Version None)
Quarter: 2008Q3

REPORT INFORMATION
  Report Type: 
  Country: None (occurrence: None)
  Receive Date: 20080902
  Receipt Date: 20080816
  Transmission Date: 20090109
  Serious: Yes (Life-Threatening, Hospitalization)
  Sender: FDA-Public Use
  Company Number: 2008BM000168

PATIENT
  Age: 34 Month
  Sex: Female
  Weight: 10 kg

DRUGS (4)
  1. NAGLAZYME [Suspect]
     Indication: MUCOPOLYSACCHARIDOSIS VI
     Dosage: 10.5 MG;QW;IVDRP; QW;IVDRP
     Route: 042
     Dates: start: 20080620, end: 20080815
  2. NAGLAZYME [Suspect]
     Indication: MUCOPOLYSACCHARIDOSIS VI
     Dosage: 10.5 MG;QW;IVDRP; QW;IVDRP
     Route: 042
     Dates: start: 20080822
  3. CETIRIZINE (CON.) [Concomitant]
  4. IBUPROFEN  (CON.) [Concomitant]

REACTIONS (3)
  - ANAPHYLACTIC REACTION [None]
  - SHOCK [None]
  - VOMITING [None]
